FAERS Safety Report 22528974 (Version 1)
Quarter: 2023Q2

REPORT INFORMATION
  Report Type: Other
  Country: None (occurrence: CN)
  Receive Date: 20230607
  Receipt Date: 20230607
  Transmission Date: 20230722
  Serious: Yes (Other)
  Sender: FDA-Public Use
  Company Number: CN-Innogenix, LLC-2142409

PATIENT
  Age: 35 Year
  Sex: Female

DRUGS (3)
  1. METRONIDAZOLE [Suspect]
     Active Substance: METRONIDAZOLE
     Indication: Infection
     Route: 065
  2. IBUPROFEN [Interacting]
     Active Substance: IBUPROFEN
     Route: 048
  3. CEFUROXIME AXETIL [Concomitant]
     Active Substance: CEFUROXIME AXETIL
     Route: 065

REACTIONS (2)
  - Liver injury [Recovering/Resolving]
  - Drug interaction [Unknown]
